FAERS Safety Report 11841014 (Version 4)
Quarter: 2016Q1

REPORT INFORMATION
  Report Type: Report from Study
  Country: US (occurrence: US)
  Receive Date: 20151216
  Receipt Date: 20160229
  Transmission Date: 20160526
  Serious: Yes (Hospitalization, Other)
  Sender: FDA-Public Use
  Company Number: US-BAYER-2015-485811

PATIENT
  Age: 56 Year
  Sex: Male

DRUGS (4)
  1. NEXAVAR [Suspect]
     Active Substance: SORAFENIB
     Indication: RENAL CELL CARCINOMA
     Dosage: 400 MG, BID ALTERNATING DAILY WITH 400 MG Q AM AND 200 MG Q PM
     Route: 048
     Dates: start: 20151214
  2. NEXAVAR [Suspect]
     Active Substance: SORAFENIB
     Indication: RENAL CELL CARCINOMA
     Dosage: 400 MG, BID
     Route: 048
     Dates: start: 20151028, end: 20160104
  3. NEXAVAR [Suspect]
     Active Substance: SORAFENIB
     Indication: RENAL CELL CARCINOMA
     Dosage: 200 MG, BID
     Route: 048
     Dates: start: 20151130
  4. NEXAVAR [Suspect]
     Active Substance: SORAFENIB
     Indication: RENAL CELL CARCINOMA
     Dosage: 400 MG, BID
     Route: 048
     Dates: start: 20151028, end: 201511

REACTIONS (8)
  - Vomiting [None]
  - Renal cell carcinoma [None]
  - Vomiting [None]
  - Scrotal abscess [None]
  - Fatigue [None]
  - Nausea [None]
  - Decreased appetite [None]
  - Wound healing normal [Recovering/Resolving]

NARRATIVE: CASE EVENT DATE: 201511
